FAERS Safety Report 24781327 (Version 1)
Quarter: 2024Q4

REPORT INFORMATION
  Report Type: Spontaneous
  Country: AU (occurrence: AU)
  Receive Date: 20241227
  Receipt Date: 20241227
  Transmission Date: 20250114
  Serious: Yes (Other)
  Sender: TEVA
  Company Number: AU-TEVA-VS-3278833

PATIENT
  Age: 61 Year
  Sex: Male

DRUGS (6)
  1. BORTEZOMIB [Suspect]
     Active Substance: BORTEZOMIB
     Indication: Product used for unknown indication
     Route: 065
  2. KYPROLIS [Suspect]
     Active Substance: CARFILZOMIB
     Indication: Product used for unknown indication
     Route: 065
  3. CYCLOPHOSPHAMIDE [Suspect]
     Active Substance: CYCLOPHOSPHAMIDE
     Indication: Product used for unknown indication
     Route: 065
  4. DEXAMETHASONE [Suspect]
     Active Substance: DEXAMETHASONE
     Indication: Product used for unknown indication
     Route: 065
  5. DARATUMUMAB [Suspect]
     Active Substance: DARATUMUMAB
     Indication: Product used for unknown indication
     Route: 065
  6. SELINEXOR [Suspect]
     Active Substance: SELINEXOR
     Indication: Product used for unknown indication
     Route: 065

REACTIONS (3)
  - Plasma cell myeloma [Unknown]
  - Transitional cell carcinoma [Unknown]
  - Off label use [Unknown]
